FAERS Safety Report 15480860 (Version 1)
Quarter: 2018Q4

REPORT INFORMATION
  Report Type: Spontaneous
  Country: HR (occurrence: HR)
  Receive Date: 20181010
  Receipt Date: 20181010
  Transmission Date: 20190205
  Serious: Yes (Hospitalization)
  Sender: FDA-Public Use
  Company Number: HR-TEVA-2018-HR-962439

PATIENT
  Age: 47 Year
  Sex: Female

DRUGS (4)
  1. IRINOTECAN KABI [Suspect]
     Active Substance: IRINOTECAN
     Indication: RECTAL CANCER METASTATIC
     Dosage: 20 MG/ML; 447 MG
     Route: 042
     Dates: start: 201803
  2. ZALTRAP [Suspect]
     Active Substance: ZIV-AFLIBERCEPT
     Indication: RECTAL CANCER METASTATIC
     Route: 042
     Dates: start: 20180328, end: 20180731
  3. KALCIJEV FOLINAT PLIVA [Suspect]
     Active Substance: LEUCOVORIN CALCIUM
     Indication: RECTAL CANCER METASTATIC
     Route: 042
     Dates: start: 201803
  4. FLUOROURACIL PLIVA 500 MG/10 ML [Concomitant]
     Active Substance: FLUOROURACIL
     Indication: RECTAL CANCER
     Dosage: 50 MG/ML; 993 MG BOLUS AND 5960 MG WE CAN KONTEJNERA
     Route: 042
     Dates: start: 201803

REACTIONS (12)
  - Febrile neutropenia [Recovering/Resolving]
  - Blood creatinine increased [Recovering/Resolving]
  - Aspartate aminotransferase increased [Recovering/Resolving]
  - Pain in extremity [Unknown]
  - Haematuria [Recovering/Resolving]
  - Oedema peripheral [Recovering/Resolving]
  - Blood glucose increased [Recovering/Resolving]
  - Blood uric acid increased [Recovering/Resolving]
  - Blood urea increased [Recovering/Resolving]
  - Proteinuria [Recovering/Resolving]
  - Hypertension [Recovering/Resolving]
  - White blood cell count decreased [Recovering/Resolving]

NARRATIVE: CASE EVENT DATE: 201803
